FAERS Safety Report 5827423-8 (Version None)
Quarter: 2008Q3

REPORT INFORMATION
  Report Type: 
  Country: None (occurrence: None)
  Receive Date: 20080730
  Receipt Date: 20080722
  Transmission Date: 20090109
  Serious: Yes (Hospitalization, Disabling, Other)
  Sender: FDA-Public Use
  Company Number: JP-ABBOTT-08P-087-0460756-00

PATIENT
  Age: 45 Year
  Sex: Male
  Weight: 63.6 kg

DRUGS (12)
  1. SEVOFLURANE [Suspect]
     Indication: GENERAL ANAESTHESIA
     Route: 055
     Dates: start: 20070205, end: 20070206
  2. PROPOFOL [Suspect]
     Indication: GENERAL ANAESTHESIA
     Route: 042
     Dates: start: 20070205, end: 20070205
  3. VECURONIUM BROMIDE [Concomitant]
     Indication: MUSCLE RELAXANT THERAPY
     Dosage: 1-12 MG IV
     Dates: start: 20070205, end: 20070206
  4. NITROUS OXIDE [Concomitant]
     Indication: GENERAL ANAESTHESIA
     Route: 055
     Dates: start: 20070205, end: 20070206
  5. FENTANYL-100 [Concomitant]
     Indication: GENERAL ANAESTHESIA
     Route: 042
     Dates: start: 20070205, end: 20070205
  6. CEFOTIAM HYDROCHLORIDE [Concomitant]
     Indication: INFECTION PROPHYLAXIS
     Route: 042
     Dates: start: 20070205, end: 20070205
  7. 20% MANNITOL [Concomitant]
     Indication: REDUCTION OF INCREASED INTRACRANIAL PRESSURE
     Route: 042
     Dates: start: 20070205, end: 20070205
  8. ETILEFRINE [Concomitant]
     Indication: BLOOD PRESSURE INCREASED
     Route: 042
     Dates: start: 20070205, end: 20070205
  9. FUROSEMIDE [Concomitant]
     Indication: POLYURIA
     Route: 042
     Dates: start: 20070205, end: 20070208
  10. HYDROCORTISONE SODIUM SUCCINATE [Concomitant]
     Indication: CEREBRAL OEDEMA MANAGEMENT
     Route: 042
     Dates: start: 20070205, end: 20070205
  11. NITRAZEPAM [Concomitant]
     Indication: SEDATION
     Route: 042
     Dates: start: 20070206, end: 20070206
  12. NICARDIPINE HYDROCHLORIDE [Concomitant]
     Indication: BLOOD PRESSURE DECREASED
     Route: 042
     Dates: start: 20070206, end: 20070206

REACTIONS (13)
  - BLISTER [None]
  - DECUBITUS ULCER [None]
  - DIALYSIS [None]
  - ERYTHEMA [None]
  - HEPATIC FUNCTION ABNORMAL [None]
  - HYPOTENSION [None]
  - ISCHAEMIA [None]
  - PAIN [None]
  - PURPURA [None]
  - RENAL IMPAIRMENT [None]
  - RHABDOMYOLYSIS [None]
  - SKIN EROSION [None]
  - SWELLING [None]
